FAERS Safety Report 26202383 (Version 1)
Quarter: 2025Q4

REPORT INFORMATION
  Report Type: Spontaneous
  Country: US (occurrence: US)
  Receive Date: 20251226
  Receipt Date: 20251226
  Transmission Date: 20260118
  Serious: Yes (Hospitalization)
  Sender: STRIDES
  Company Number: US-STRIDES ARCOLAB LIMITED-2025SP016018

PATIENT
  Age: 47 Year
  Sex: Female

DRUGS (2)
  1. MORPHINE SULFATE [Suspect]
     Active Substance: MORPHINE SULFATE
     Indication: Breakthrough pain
     Dosage: 60 MILLIGRAM, THREE TIMES DAILY
     Route: 065
  2. MORPHINE [Suspect]
     Active Substance: MORPHINE
     Indication: Breakthrough pain
     Dosage: 30 MILLIGRAM AS NEEDED (IMMEDIATE-RELEASE)
     Route: 065

REACTIONS (2)
  - Stress cardiomyopathy [Recovered/Resolved]
  - Drug withdrawal syndrome [Recovered/Resolved]
